FAERS Safety Report 5588241-1 (Version None)
Quarter: 2008Q1

REPORT INFORMATION
  Report Type: 
  Country: None (occurrence: None)
  Receive Date: 20080109
  Receipt Date: 20080109
  Transmission Date: 20080703
  Serious: Yes (Life-Threatening)
  Sender: FDA-Public Use
  Company Number: None

PATIENT
  Age: 62 Year
  Sex: Female
  Weight: 84.369 kg

DRUGS (2)
  1. FENTANYL-100 [Suspect]
     Indication: ARTHRITIS
     Dosage: TWICE  PO
     Route: 048
     Dates: start: 20061115, end: 20061120
  2. FENTANYL-100 [Suspect]
     Indication: FIBROMYALGIA
     Dosage: TWICE  PO
     Route: 048
     Dates: start: 20061115, end: 20061120

REACTIONS (2)
  - DYSPNOEA [None]
  - PAINFUL RESPIRATION [None]
